FAERS Safety Report 6871938-0 (Version None)
Quarter: 2010Q3

REPORT INFORMATION
  Report Type: 
  Country: None (occurrence: None)
  Receive Date: 20100723
  Receipt Date: 20100714
  Transmission Date: 20110219
  Serious: Yes (Hospitalization)
  Sender: FDA-Public Use
  Company Number: NSADSS2000002493

PATIENT
  Age: 50 Year
  Sex: Female

DRUGS (5)
  1. REMICADE [Suspect]
     Indication: RHEUMATOID ARTHRITIS
     Route: 041
     Dates: start: 20000101
  2. REMICADE [Suspect]
     Route: 041
     Dates: start: 20000101
  3. REMICADE [Suspect]
     Route: 041
     Dates: start: 20000101
  4. METHOTREXATE [Suspect]
     Indication: RHEUMATOID ARTHRITIS
     Route: 048
  5. METHOTREXATE [Suspect]
     Route: 048

REACTIONS (5)
  - ANGIOEDEMA [None]
  - DERMATITIS [None]
  - PRURITUS [None]
  - PUSTULAR PSORIASIS [None]
  - URTICARIA [None]
